FAERS Safety Report 9409940 (Version 7)
Quarter: 2014Q2

REPORT INFORMATION
  Report Type: Report from Study
  Country: US (occurrence: US)
  Receive Date: 20130719
  Receipt Date: 20140429
  Transmission Date: 20141212
  Serious: Yes (Hospitalization)
  Sender: FDA-Public Use
  Company Number: US-JNJFOC-20130708982

PATIENT
  Age: 15 Year
  Sex: Female
  Weight: 49.5 kg

DRUGS (26)
  1. REMICADE [Suspect]
     Indication: CROHN^S DISEASE
     Route: 042
     Dates: start: 20131226
  2. REMICADE [Suspect]
     Indication: CROHN^S DISEASE
     Route: 042
     Dates: start: 20130903
  3. REMICADE [Suspect]
     Indication: CROHN^S DISEASE
     Route: 042
     Dates: start: 20130723
  4. REMICADE [Suspect]
     Indication: CROHN^S DISEASE
     Route: 042
     Dates: start: 20111215
  5. TYLENOL [Concomitant]
     Route: 065
  6. 5-ASA [Concomitant]
     Route: 048
  7. BACITRACIN [Concomitant]
     Route: 065
  8. VITAMIN D3 [Concomitant]
     Indication: NUTRITIONAL SUPPLEMENTATION
     Route: 065
  9. FERROUS SULFATE [Concomitant]
     Route: 065
  10. HYDROCORTISONE [Concomitant]
     Route: 065
  11. MULTIVITAMINS [Concomitant]
     Route: 065
  12. PREDNISONE [Concomitant]
     Route: 065
  13. NEXIUM [Concomitant]
     Route: 065
  14. BENADRYL [Concomitant]
     Route: 065
  15. IRON [Concomitant]
     Route: 065
  16. LORYNA [Concomitant]
     Route: 065
  17. ALBUTEROL [Concomitant]
     Route: 065
  18. LOMOTIL [Concomitant]
     Route: 065
  19. FLINTSTONES MULTIPLE VITAMINS [Concomitant]
     Indication: NUTRITIONAL SUPPLEMENTATION
     Route: 065
  20. GENTAMICIN [Concomitant]
     Route: 065
  21. AMPICILLIN [Concomitant]
     Route: 065
  22. HEPARIN [Concomitant]
     Route: 065
  23. ACETAMINOPHEN [Concomitant]
     Route: 065
  24. ZOFRAN [Concomitant]
     Route: 065
  25. MIRALAX [Concomitant]
     Route: 065
  26. DULCOLAX [Concomitant]
     Route: 065

REACTIONS (6)
  - Crohn^s disease [Recovered/Resolved with Sequelae]
  - Fistula [Recovered/Resolved with Sequelae]
  - Abdominal abscess [Recovered/Resolved with Sequelae]
  - Fistula [Recovered/Resolved with Sequelae]
  - Ileostomy [Recovered/Resolved]
  - Ileectomy [Recovered/Resolved]
